FAERS Safety Report 13052244 (Version 2)
Quarter: 2017Q1

REPORT INFORMATION
  Report Type: Report from Study
  Country: US (occurrence: US)
  Receive Date: 20161221
  Receipt Date: 20170202
  Transmission Date: 20170428
  Serious: Yes (Death, Hospitalization, Other)
  Sender: FDA-Public Use
  Company Number: US-009507513-1612USA010097

PATIENT
  Age: 71 Year
  Sex: Female
  Weight: 73.47 kg

DRUGS (8)
  1. CARTRAX [Concomitant]
     Indication: SUPRAVENTRICULAR TACHYCARDIA
     Dosage: 180 MG, QD
     Route: 048
     Dates: start: 2006, end: 20161005
  2. KEYTRUDA [Suspect]
     Active Substance: PEMBROLIZUMAB
     Indication: BREAST CANCER METASTATIC
     Dosage: UNK UNK, Q3W
     Route: 042
     Dates: start: 20160901, end: 20160901
  3. KEYTRUDA [Suspect]
     Active Substance: PEMBROLIZUMAB
     Indication: METASTASES TO BONE MARROW
  4. MECHOLYL TABLETS [Concomitant]
     Indication: DYSPNOEA
     Dosage: 4 MG, QD
     Route: 048
     Dates: start: 20160916, end: 20161005
  5. KEYTRUDA [Suspect]
     Active Substance: PEMBROLIZUMAB
     Indication: METASTASES TO LUNG
  6. KEYTRUDA [Suspect]
     Active Substance: PEMBROLIZUMAB
     Indication: METASTASES TO BONE
  7. FENTANYL. [Concomitant]
     Active Substance: FENTANYL
     Indication: CANCER PAIN
     Dosage: 12 MG, QD
     Route: 062
     Dates: start: 20160921, end: 20161005
  8. KEYTRUDA [Suspect]
     Active Substance: PEMBROLIZUMAB
     Indication: METASTASES TO LIVER

REACTIONS (5)
  - Malignant neoplasm progression [Fatal]
  - Product use issue [Unknown]
  - Multiple organ dysfunction syndrome [Fatal]
  - Malignant pleural effusion [Not Recovered/Not Resolved]
  - Acute kidney injury [Fatal]

NARRATIVE: CASE EVENT DATE: 2016
